FAERS Safety Report 11883414 (Version 1)
Quarter: 2015Q4

REPORT INFORMATION
  Report Type: Report from Study
  Country: CA (occurrence: CA)
  Receive Date: 20151231
  Receipt Date: 20151231
  Transmission Date: 20160305
  Serious: Yes (Other)
  Sender: FDA-Public Use
  Company Number: CA-VALIDUS PHARMACEUTICALS LLC-CA-2015VAL001550

PATIENT

DRUGS (3)
  1. METOPROLOL TARTRATE. [Suspect]
     Active Substance: METOPROLOL TARTRATE
     Indication: PRODUCT USED FOR UNKNOWN INDICATION
     Dosage: 50 MG, BID
  2. SANDOSTATIN [Suspect]
     Active Substance: OCTREOTIDE ACETATE
     Indication: NEUROENDOCRINE CARCINOMA
     Dosage: 60 MG, EVERY 4 WEEKS
     Route: 030
     Dates: start: 20140827
  3. SANDOSTATIN [Suspect]
     Active Substance: OCTREOTIDE ACETATE
     Indication: NEUROENDOCRINE CARCINOMA
     Dosage: 100 ?G, ONCE/SINGLE (TEST DOSE)
     Route: 058
     Dates: start: 20140818, end: 20140818

REACTIONS (6)
  - Weight decreased [Recovering/Resolving]
  - Decreased appetite [Unknown]
  - Blood pressure systolic increased [Unknown]
  - Chest discomfort [Unknown]
  - Diarrhoea [Recovered/Resolved]
  - Energy increased [Unknown]

NARRATIVE: CASE EVENT DATE: 201503
